FAERS Safety Report 5571473-6 (Version None)
Quarter: 2007Q4

REPORT INFORMATION
  Report Type: 
  Country: None (occurrence: None)
  Receive Date: 20071221
  Receipt Date: 20071210
  Transmission Date: 20080405
  Serious: Yes (Other)
  Sender: FDA-Public Use
  Company Number: ES-ROCHE-536013

PATIENT
  Age: 46 Year
  Sex: Male

DRUGS (4)
  1. FUZEON [Suspect]
     Indication: HIV INFECTION
     Route: 065
     Dates: start: 20070614, end: 20070720
  2. APTIVUS [Interacting]
     Indication: HIV INFECTION
     Dosage: FORM: SOFT CAPSULE.
     Route: 065
     Dates: start: 20070614, end: 20070720
  3. NORVIR [Interacting]
     Indication: HIV INFECTION
     Dosage: FORM: SOFT CAPSULE.
     Route: 065
     Dates: start: 20070614, end: 20070720
  4. SUSTIVA [Interacting]
     Indication: HIV INFECTION
     Dosage: FORM: COATED TABLET.
     Route: 065
     Dates: start: 20070614, end: 20070720

REACTIONS (4)
  - DIARRHOEA [None]
  - DRUG INTERACTION [None]
  - JAUNDICE [None]
  - VOMITING [None]
